FAERS Safety Report 5753632-2 (Version None)
Quarter: 2008Q2

REPORT INFORMATION
  Report Type: 
  Country: None (occurrence: None)
  Receive Date: 20080530
  Receipt Date: 20080528
  Transmission Date: 20081010
  Serious: Yes (Death, Hospitalization)
  Sender: FDA-Public Use
  Company Number: DE-BRISTOL-MYERS SQUIBB COMPANY-14076277

PATIENT
  Age: 66 Year

DRUGS (4)
  1. CETUXIMAB [Suspect]
     Indication: COLON CANCER
     Dosage: STRENGTH 5MG/ML. MOST RECENT INFUSION ON 14JAN08,RECEIVED 23 CYCLES
     Route: 042
     Dates: start: 20070719
  2. OXALIPLATIN [Suspect]
     Indication: COLON CANCER
     Dosage: MOST RECENT INFUSION ON 07JAN08
     Route: 042
     Dates: start: 20070719
  3. FLUOROURACIL [Suspect]
     Indication: COLON CANCER
     Dosage: MOST RECENT INFUSION ON 08JAN08
     Route: 042
     Dates: start: 20070719
  4. FOLINIC ACID [Suspect]
     Indication: COLON CANCER
     Dosage: MOST RECENT INFUSION ON 08JAN08
     Route: 042
     Dates: start: 20070719

REACTIONS (1)
  - PNEUMONIA [None]
